FAERS Safety Report 9565515 (Version 6)
Quarter: 2014Q2

REPORT INFORMATION
  Report Type: Report from Study
  Country: US (occurrence: US)
  Receive Date: 20130930
  Receipt Date: 20140401
  Transmission Date: 20141212
  Serious: Yes (Life-Threatening, Hospitalization, Disabling)
  Sender: FDA-Public Use
  Company Number: US-ACTELION-A-NJ2013-88908

PATIENT
  Age: 76 Year
  Sex: Male

DRUGS (13)
  1. TRACLEER [Suspect]
     Indication: PULMONARY ARTERIAL HYPERTENSION
     Dosage: 125 MG, BID
     Route: 048
     Dates: start: 2013
  2. TRACLEER [Suspect]
     Dosage: 62.5 MG, QD
     Route: 048
     Dates: start: 201212, end: 2013
  3. ATORVASTATIN [Concomitant]
     Dosage: 40 MG, QD
  4. ASPIRIN [Concomitant]
     Dosage: 81 MG, QD
  5. DIGOXIN [Concomitant]
     Dosage: 1.25 MG, QD
  6. CARVEDILOL [Concomitant]
     Dosage: 12.5 MG, QD
  7. GLIMEPIRIDE [Concomitant]
     Dosage: 2 MG, BID
  8. POTASSIUM CHLORIDE [Concomitant]
     Dosage: 20 MG, BID
  9. METFORMIN [Concomitant]
     Dosage: 850 MG, BID
  10. AMIODARONE [Concomitant]
     Dosage: 200 MG, QD
     Dates: start: 201309
  11. COUMADIN [Concomitant]
     Dosage: 3 MG, QD
     Dates: start: 201309
  12. BUMETANIDE [Concomitant]
     Dosage: 1 MG, QD
     Dates: start: 201309
  13. SILDENAFIL [Concomitant]

REACTIONS (7)
  - Atrial fibrillation [Recovered/Resolved]
  - Cardiac failure congestive [Unknown]
  - Heart rate increased [Recovered/Resolved]
  - Pulmonary oedema [Not Recovered/Not Resolved]
  - Dyspnoea [Unknown]
  - Swelling [Unknown]
  - Condition aggravated [Unknown]
